FAERS Safety Report 8131641-6 (Version None)
Quarter: 2012Q1

REPORT INFORMATION
  Report Type: 
  Country: None (occurrence: None)
  Receive Date: 20120213
  Receipt Date: 20120208
  Transmission Date: 20120608
  Serious: No
  Sender: FDA-Public Use
  Company Number: US-B.I. PHARMACEUTICALS,INC./RIDGEFIELD-2012-BP-02510BP

PATIENT
  Age: 62 Year
  Sex: Female

DRUGS (12)
  1. ALLBUTEROL [Concomitant]
     Route: 048
  2. PROZAC [Concomitant]
     Dosage: 20 MG
     Route: 048
  3. PRAVASTATIN [Concomitant]
     Dosage: 40 MG
     Route: 048
  4. DILTIAZEM HCL [Concomitant]
     Dosage: 120 MG
     Route: 048
  5. GLYMEPRIDE [Concomitant]
     Dosage: 1 MG
     Route: 048
  6. VOLTAREN [Concomitant]
     Dosage: 150 MG
     Route: 048
  7. FOLIC ACID [Concomitant]
     Dosage: 1 MG
     Route: 048
  8. LORTAB [Concomitant]
     Dosage: 1300 MG
     Route: 048
  9. HYDROCHLOROTHIAZIDE [Concomitant]
     Dosage: 25 MG
     Route: 048
  10. TRADJENTA [Suspect]
     Indication: TYPE 2 DIABETES MELLITUS
     Dosage: 5 MG
     Route: 048
     Dates: start: 20120125
  11. LISINOPRIL [Concomitant]
     Route: 048
  12. METFORMIN HCL [Concomitant]
     Dosage: 2000 MG
     Route: 048

REACTIONS (2)
  - VOMITING [None]
  - GASTROOESOPHAGEAL REFLUX DISEASE [None]
